FAERS Safety Report 19202678 (Version 1)
Quarter: 2021Q2

REPORT INFORMATION
  Report Type: Report from Study
  Country: MX (occurrence: MX)
  Receive Date: 20210502
  Receipt Date: 20210502
  Transmission Date: 20210717
  Serious: Yes (Other)
  Sender: FDA-Public Use
  Company Number: NVSC2020MX119179

PATIENT
  Age: 58 Year
  Sex: Female
  Weight: 82 kg

DRUGS (1)
  1. CO?DIOVAN [Suspect]
     Active Substance: HYDROCHLOROTHIAZIDE\VALSARTAN
     Indication: HYPERTENSION
     Dosage: 1 DF (ONCE DAILY, STARTED APPROXIMATELY 10 YEARS AGO)
     Route: 048

REACTIONS (8)
  - Neck pain [Unknown]
  - Drug ineffective [Unknown]
  - Seizure [Unknown]
  - Visual impairment [Not Recovered/Not Resolved]
  - Noninfective encephalitis [Unknown]
  - Blood pressure increased [Recovering/Resolving]
  - Eye inflammation [Unknown]
  - Vomiting [Unknown]

NARRATIVE: CASE EVENT DATE: 202103
